FAERS Safety Report 24152770 (Version 1)
Quarter: 2024Q3

REPORT INFORMATION
  Report Type: Spontaneous
  Country: US (occurrence: None)
  Receive Date: 20240730
  Receipt Date: 20240730
  Transmission Date: 20241017
  Serious: No
  Sender: Public
  Company Number: None

PATIENT
  Sex: Female

DRUGS (4)
  1. EVEROLIMUS [Suspect]
     Active Substance: EVEROLIMUS
     Indication: Metastases to liver
     Dosage: FREQUENCY : DAILY;?
     Route: 048
     Dates: start: 202404
  2. EVEROLIMUS [Suspect]
     Active Substance: EVEROLIMUS
     Indication: Metastasis
  3. EVEROLIMUS [Suspect]
     Active Substance: EVEROLIMUS
     Indication: Cholangiocarcinoma
  4. ENTECAVIR [Concomitant]

REACTIONS (5)
  - Toothache [None]
  - Pain [None]
  - Blood glucose increased [None]
  - Chills [None]
  - Tooth fracture [None]
